FAERS Safety Report 17887460 (Version 2)
Quarter: 2020Q3

REPORT INFORMATION
  Report Type: Report from Study
  Country: US (occurrence: US)
  Receive Date: 20200612
  Receipt Date: 20200813
  Transmission Date: 20201103
  Serious: Yes (Hospitalization)
  Sender: FDA-Public Use
  Company Number: US-TAIHO ONCOLOGY  INC-EU-2020-01817

PATIENT
  Sex: Male
  Weight: 67.69 kg

DRUGS (2)
  1. LONSURF [Suspect]
     Active Substance: TIPIRACIL HYDROCHLORIDE\TRIFLURIDINE
     Indication: COLON CANCER
     Dosage: CYCLE 2
     Route: 048
     Dates: start: 20200505
  2. LONSURF [Suspect]
     Active Substance: TIPIRACIL HYDROCHLORIDE\TRIFLURIDINE
     Dosage: CYCLE UNKNOWN
     Route: 048
     Dates: end: 20200807

REACTIONS (8)
  - Bladder neoplasm [Unknown]
  - Malaise [Unknown]
  - Illness [Unknown]
  - Cystitis [Unknown]
  - Asthenia [Unknown]
  - Micturition urgency [Unknown]
  - Treatment noncompliance [Unknown]
  - Fatigue [Unknown]
